FAERS Safety Report 23173841 (Version 2)
Quarter: 2023Q4

REPORT INFORMATION
  Report Type: Spontaneous
  Country: NL (occurrence: NL)
  Receive Date: 20231111
  Receipt Date: 20231129
  Transmission Date: 20240110
  Serious: Yes (Other)
  Sender: FDA-Public Use
  Company Number: NL-AMGEN-NLDSP2023196373

PATIENT

DRUGS (5)
  1. ADALIMUMAB [Suspect]
     Active Substance: ADALIMUMAB\ISOPROPYL ALCOHOL
     Indication: Psoriasis
     Dosage: UNK
     Route: 065
  2. ADALIMUMAB [Suspect]
     Active Substance: ADALIMUMAB\ISOPROPYL ALCOHOL
     Indication: Colitis ulcerative
  3. ADALIMUMAB [Suspect]
     Active Substance: ADALIMUMAB\ISOPROPYL ALCOHOL
     Indication: Crohn^s disease
  4. ADALIMUMAB [Suspect]
     Active Substance: ADALIMUMAB\ISOPROPYL ALCOHOL
     Indication: Axial spondyloarthritis
  5. ADALIMUMAB [Suspect]
     Active Substance: ADALIMUMAB\ISOPROPYL ALCOHOL
     Indication: Psoriatic arthropathy

REACTIONS (35)
  - Poisoning [Unknown]
  - Neoplasm malignant [Unknown]
  - Blood disorder [Unknown]
  - Lymphatic disorder [Unknown]
  - Cardiac disorder [Unknown]
  - Ear disorder [Unknown]
  - Inner ear disorder [Unknown]
  - Endocrine disorder [Unknown]
  - Eye disorder [Unknown]
  - Gastrointestinal disorder [Unknown]
  - General symptom [Unknown]
  - Hepatobiliary disease [Unknown]
  - Immune system disorder [Unknown]
  - Infestation [Unknown]
  - Procedural complication [Unknown]
  - Investigation [Unknown]
  - Metabolic disorder [Unknown]
  - Malnutrition [Unknown]
  - Musculoskeletal disorder [Unknown]
  - Connective tissue disorder [Unknown]
  - Nervous system disorder [Unknown]
  - Mental disorder [Unknown]
  - Renal disorder [Unknown]
  - Urinary tract disorder [Unknown]
  - Reproductive tract disorder [Unknown]
  - Breast disorder [Unknown]
  - Respiratory disorder [Unknown]
  - Mediastinal disorder [Unknown]
  - Skin disorder [Unknown]
  - Social problem [Unknown]
  - Angiopathy [Unknown]
  - Injury [Unknown]
  - Infection [Unknown]
  - Administration site reaction [Unknown]
  - Benign neoplasm [Unknown]
